FAERS Safety Report 7589986-4 (Version None)
Quarter: 2011Q3

REPORT INFORMATION
  Report Type: 
  Country: None (occurrence: None)
  Receive Date: 20110705
  Receipt Date: 20110627
  Transmission Date: 20111222
  Serious: Yes (Other)
  Sender: FDA-Public Use
  Company Number: A0926167A

PATIENT
  Age: 40 Year
  Sex: Male
  Weight: 84.1 kg

DRUGS (3)
  1. PAXIL [Suspect]
     Indication: MENTAL DISORDER
     Route: 048
     Dates: end: 20110401
  2. MINOCYCLINE HCL [Concomitant]
  3. CLEOCIN HYDROCHLORIDE [Concomitant]
     Route: 061

REACTIONS (11)
  - HEADACHE [None]
  - MOOD SWINGS [None]
  - INFLUENZA LIKE ILLNESS [None]
  - CONSTIPATION [None]
  - ANGER [None]
  - WITHDRAWAL SYNDROME [None]
  - RECTAL HAEMORRHAGE [None]
  - TINNITUS [None]
  - ACNE [None]
  - SELF ESTEEM DECREASED [None]
  - ADVERSE DRUG REACTION [None]
